FAERS Safety Report 6651583-2 (Version None)
Quarter: 2010Q1

REPORT INFORMATION
  Report Type: 
  Country: None (occurrence: None)
  Receive Date: 20100325
  Receipt Date: 20100315
  Transmission Date: 20100710
  Serious: Yes (Hospitalization)
  Sender: FDA-Public Use
  Company Number: DE-ROCHE-692767

PATIENT
  Sex: Female
  Weight: 70.5 kg

DRUGS (9)
  1. HERCEPTIN [Suspect]
     Dosage: TCH SCHEME
     Route: 065
     Dates: start: 20090720
  2. HERCEPTIN [Suspect]
     Dosage: MONOTHERAPY, LAST DOSE PRIOR TO EVENTS ON 15 FEB 2010
     Route: 065
     Dates: start: 20091124, end: 20100215
  3. DOCETAXEL [Concomitant]
     Dosage: TCH SCHEME
     Dates: start: 20090720
  4. CARBOPLATIN [Concomitant]
     Dosage: TCH SCHEME
     Dates: start: 20090720
  5. COAPROVEL [Concomitant]
  6. AMLODIPINE [Concomitant]
  7. BISOPROLOL [Concomitant]
  8. PREDNISOLON [Concomitant]
     Indication: PULMONARY SARCOIDOSIS
  9. ASPIRIN [Concomitant]

REACTIONS (10)
  - ANTI-THYROID ANTIBODY POSITIVE [None]
  - BLOOD PRESSURE DECREASED [None]
  - BLOOD THYROID STIMULATING HORMONE DECREASED [None]
  - GAIT DISTURBANCE [None]
  - GENERAL PHYSICAL HEALTH DETERIORATION [None]
  - TACHYCARDIA [None]
  - THYROXINE FREE INCREASED [None]
  - TREMOR [None]
  - TRI-IODOTHYRONINE FREE INCREASED [None]
  - WEIGHT DECREASED [None]
